FAERS Safety Report 10785941 (Version 1)
Quarter: 2015Q1

REPORT INFORMATION
  Report Type: Spontaneous
  Country: US (occurrence: None)
  Receive Date: 20150210
  Receipt Date: 20150210
  Transmission Date: 20150721
  Serious: Yes (Other)
  Sender: FDA-Public Use
  Company Number: None

PATIENT
  Age: 56 Year
  Sex: Male
  Weight: 113.4 kg

DRUGS (1)
  1. DEFINITY [Suspect]
     Active Substance: PERFLUTREN
     Dosage: 6MLS OF DILUTED DEFINITY, PRN/AS NEEDED, INTRAVENOUS
     Route: 042
     Dates: start: 20150209, end: 20150209

REACTIONS (1)
  - Back pain [None]

NARRATIVE: CASE EVENT DATE: 20150209
